FAERS Safety Report 9847374 (Version 1)
Quarter: 2014Q1

REPORT INFORMATION
  Report Type: Spontaneous
  Country: US (occurrence: US)
  Receive Date: 20140127
  Receipt Date: 20140127
  Transmission Date: 20141002
  Serious: No
  Sender: FDA-Public Use
  Company Number: US-MYLANLABS-2013S1015901

PATIENT
  Age: 64 Year
  Sex: Male

DRUGS (1)
  1. FINASTERIDE TABLETS, USP 5 MG (ATLLC) (FINASTERIDE) [Suspect]
     Indication: BENIGN PROSTATIC HYPERPLASIA
     Route: 048
     Dates: start: 201306

REACTIONS (1)
  - Fatigue [Not Recovered/Not Resolved]
